FAERS Safety Report 10596347 (Version 1)
Quarter: 2014Q4

REPORT INFORMATION
  Report Type: Spontaneous
  Country: GB (occurrence: GB)
  Receive Date: 20141120
  Receipt Date: 20141120
  Transmission Date: 20150529
  Serious: Yes (Other)
  Sender: FDA-Public Use
  Company Number: GB-WATSON-2014-24553

PATIENT
  Age: 62 Year
  Sex: Male
  Weight: 82 kg

DRUGS (2)
  1. BECONASE AQ [Concomitant]
     Active Substance: BECLOMETHASONE DIPROPIONATE MONOHYDRATE
     Indication: PRODUCT USED FOR UNKNOWN INDICATION
     Dosage: UNK
     Route: 065
  2. TRIMETHOPRIM (UNKNOWN) [Suspect]
     Active Substance: TRIMETHOPRIM
     Indication: TESTICULAR PAIN
     Dosage: 200 MG, UNK
     Route: 048
     Dates: start: 20141024, end: 20141025

REACTIONS (4)
  - Heart rate irregular [Recovered/Resolved]
  - Rapid eye movements sleep abnormal [Recovered/Resolved]
  - Pruritus [Recovered/Resolved]
  - Muscle contractions involuntary [Recovered/Resolved]

NARRATIVE: CASE EVENT DATE: 20141024
